FAERS Safety Report 15742288 (Version 1)
Quarter: 2018Q4

REPORT INFORMATION
  Report Type: Spontaneous
  Country: FR (occurrence: FR)
  Receive Date: 20181219
  Receipt Date: 20181219
  Transmission Date: 20190205
  Serious: Yes (Death)
  Sender: FDA-Public Use
  Company Number: FR-ALLERGAN-1858101US

PATIENT
  Age: 77 Year
  Sex: Male

DRUGS (3)
  1. TEGRETOL [Suspect]
     Active Substance: CARBAMAZEPINE
     Indication: MANIA
     Dosage: 1 DF, QD
     Route: 048
     Dates: end: 20170502
  2. CITALOPRAM HYDROBROMIDE - BP [Suspect]
     Active Substance: CITALOPRAM HYDROBROMIDE
     Indication: DEPRESSION
     Dosage: 1 DF, QD
     Route: 048
     Dates: end: 20170502
  3. CLOPIXOL ACTION PROLONG?E SOLUTION INJECTABLE I.M . [Suspect]
     Active Substance: ZUCLOPENTHIXOL DECANOATE
     Indication: DEPRESSION
     Dosage: UNK
     Route: 030
     Dates: start: 20170425, end: 20170502

REACTIONS (3)
  - Somnolence [Recovered/Resolved]
  - Disturbance in attention [Recovered/Resolved]
  - Acute respiratory failure [Fatal]

NARRATIVE: CASE EVENT DATE: 20170425
